FAERS Safety Report 4693408-0 (Version None)
Quarter: 2005Q2

REPORT INFORMATION
  Report Type: 
  Country: None (occurrence: None)
  Receive Date: 20050608
  Receipt Date: 20040709
  Transmission Date: 20051028
  Serious: Yes (Other)
  Sender: FDA-Public Use
  Company Number: 373943

PATIENT

DRUGS (3)
  1. ISOTRETINOIN [Suspect]
     Indication: ACNE
     Dosage: ORAL
     Route: 048
     Dates: end: 20040228
  2. FLUCTINE (FLUOXETINE) 20 MG [Suspect]
     Indication: PANIC ATTACK
     Dosage: 20 MG DAILY ORAL
     Route: 048
     Dates: end: 20040515
  3. STILNOX (ZOLPIDEM TARTRATE) 10 MG [Suspect]
     Indication: SLEEP DISORDER
     Dosage: 10 MG DAILY ORAL
     Route: 048
     Dates: end: 20040515

REACTIONS (3)
  - DRUG EXPOSURE DURING PREGNANCY [None]
  - NO ADVERSE EFFECT [None]
  - PREGNANCY [None]
